FAERS Safety Report 8818736 (Version 3)
Quarter: 2013Q2

REPORT INFORMATION
  Report Type: Spontaneous
  Country: US (occurrence: None)
  Receive Date: 20121002
  Receipt Date: 20130416
  Transmission Date: 20140414
  Serious: Yes (Hospitalization, Other)
  Sender: FDA-Public Use
  Company Number: ADR-2012-01784

PATIENT
  Sex: Female

DRUGS (2)
  1. LIORESAL INTRATHECAL (BACLOFEN INJECTION) 500 MCG/ML [Suspect]
     Indication: MUSCLE SPASTICITY
  2. LIORESAL INTRATHECAL (BACLOFEN INJECTION) 500 MCG/ML [Suspect]
     Indication: CEREBRAL PALSY

REACTIONS (10)
  - Headache [None]
  - Vomiting [None]
  - Incision site infection [None]
  - Muscle spasms [None]
  - Disease recurrence [None]
  - Scar [None]
  - Impaired healing [None]
  - Wound dehiscence [None]
  - Nausea [None]
  - Cerebrospinal fluid leakage [None]
